FAERS Safety Report 8540173-2 (Version None)
Quarter: 2012Q3

REPORT INFORMATION
  Report Type: 
  Country: None (occurrence: None)
  Receive Date: 20120713
  Receipt Date: 20120628
  Transmission Date: 20120928
  Serious: Yes (Disabling)
  Sender: FDA-Public Use
  Company Number: TCI2012A00194

PATIENT
  Age: 62 Year
  Sex: Male

DRUGS (8)
  1. METFORMIN HYDROCHLORIDE [Concomitant]
  2. MIGLITOL [Concomitant]
  3. SITAGLIPTIN PHOSPHATE [Suspect]
     Indication: DIABETES MELLITUS
     Dosage: UNK (50 MG)
     Route: 048
     Dates: start: 20100311
  4. EQUA (VILDAGLIPTIN) [Concomitant]
  5. GLUFAST (MITIGLINIDE CALCIUM) [Concomitant]
  6. ACTOS [Suspect]
     Indication: DIABETES MELLITUS
     Dosage: UNK (30 MG)
     Route: 048
     Dates: start: 20091212
  7. HERBAL EXTRACT NOS [Concomitant]
  8. BASEN OD TABLETS 0.2 (VOGLIBOSE) [Concomitant]

REACTIONS (4)
  - IDIOPATHIC PULMONARY FIBROSIS [None]
  - DYSPNOEA EXERTIONAL [None]
  - INTERSTITIAL LUNG DISEASE [None]
  - NASOPHARYNGITIS [None]
